FAERS Safety Report 7673753-7 (Version None)
Quarter: 2011Q3

REPORT INFORMATION
  Report Type: 
  Country: None (occurrence: None)
  Receive Date: 20110810
  Receipt Date: 20110801
  Transmission Date: 20111222
  Serious: Yes (Hospitalization)
  Sender: FDA-Public Use
  Company Number: JP-ASTRAZENECA-2011SE45739

PATIENT
  Age: 28804 Day
  Sex: Male

DRUGS (18)
  1. CLOPIDOGREL [Suspect]
     Indication: ACUTE CORONARY SYNDROME
     Dosage: TWO TIMES A DAY
     Route: 048
     Dates: start: 20110311
  2. PLACEBO [Suspect]
     Indication: ACUTE CORONARY SYNDROME
     Dosage: DAILY
     Route: 048
     Dates: start: 20110311
  3. OPALMON [Concomitant]
     Indication: LUMBAR SPINAL STENOSIS
     Route: 048
  4. NITROPEN [Concomitant]
     Indication: ANGINA UNSTABLE
     Route: 048
     Dates: start: 20110320
  5. LEVOFLOXACIN [Concomitant]
     Indication: HORDEOLUM
     Route: 047
     Dates: start: 20110426
  6. STUDY PROCEDURE [Suspect]
     Indication: ACUTE CORONARY SYNDROME
  7. ASPIRIN [Suspect]
     Indication: ACUTE CORONARY SYNDROME
     Route: 048
     Dates: start: 20110311
  8. LIVALO [Concomitant]
     Indication: DYSLIPIDAEMIA
     Route: 048
     Dates: start: 20110311
  9. XALATAN [Concomitant]
     Indication: GLAUCOMA
     Route: 047
  10. CONIEL [Concomitant]
     Indication: HYPERTENSION
     Route: 048
     Dates: start: 20110313
  11. DIOVAN [Concomitant]
     Indication: HYPERTENSION
     Route: 048
     Dates: start: 20110314
  12. UNISIA [Concomitant]
     Indication: HYPERTENSION
     Route: 048
     Dates: start: 20110409
  13. OFLOXACIN [Concomitant]
     Indication: HORDEOLUM
     Route: 047
     Dates: start: 20110426
  14. RADEN [Concomitant]
     Indication: GASTRITIS PROPHYLAXIS
     Route: 048
  15. DILTIAZEM HCL [Concomitant]
     Indication: HYPERTENSION
     Route: 048
     Dates: start: 20110311
  16. CELECOXIB [Concomitant]
     Indication: LUMBAR SPINAL STENOSIS
     Route: 048
  17. COSOPT [Concomitant]
     Indication: GLAUCOMA
     Route: 047
  18. SIGMART [Concomitant]
     Indication: ANGINA UNSTABLE
     Route: 048
     Dates: start: 20110311

REACTIONS (1)
  - IN-STENT CORONARY ARTERY RESTENOSIS [None]
